FAERS Safety Report 7324108-6 (Version None)
Quarter: 2011Q1

REPORT INFORMATION
  Report Type: 
  Country: None (occurrence: None)
  Receive Date: 20110218
  Receipt Date: 20110128
  Transmission Date: 20110831
  Serious: Yes (Other)
  Sender: FDA-Public Use
  Company Number: 20110063

PATIENT
  Age: 59 Year
  Sex: Male
  Weight: 83.0083 kg

DRUGS (2)
  1. CYANOCOBALAMIN INJ [Suspect]
     Indication: VITAMIN B12 DEFICIENCY
     Dosage: 1000 MCG SUBCUTANEOUS
     Route: 058
  2. CYANOCOBALAMIN INJ [Suspect]
     Dosage: 1000 MCG SUBCUTANEOUS
     Route: 058

REACTIONS (4)
  - ERYTHEMA [None]
  - PRURITUS [None]
  - FLUSHING [None]
  - HOT FLUSH [None]
